FAERS Safety Report 6119862-5 (Version None)
Quarter: 2009Q1

REPORT INFORMATION
  Report Type: 
  Country: None (occurrence: None)
  Receive Date: 20090305
  Receipt Date: 20090223
  Transmission Date: 20090719
  Serious: Yes (Death)
  Sender: FDA-Public Use
  Company Number: THYM-1000921

PATIENT
  Sex: Male
  Weight: 8 kg

DRUGS (1)
  1. THYMOGLOBULIN [Suspect]
     Indication: STEM CELL TRANSPLANT
     Dosage: INTRAVENOUS
     Route: 042
     Dates: start: 20090209, end: 20090209

REACTIONS (1)
  - DEATH [None]
